FAERS Safety Report 6997968-6 (Version None)
Quarter: 2010Q3

REPORT INFORMATION
  Report Type: 
  Country: None (occurrence: None)
  Receive Date: 20100901
  Receipt Date: 20100503
  Transmission Date: 20110219
  Serious: Yes (Other)
  Sender: FDA-Public Use
  Company Number: 230551USA

PATIENT
  Age: 59 Year
  Sex: Male

DRUGS (14)
  1. OXALIPLATIN [Suspect]
     Indication: COLON CANCER
     Dosage: (195 MG), INTRAVENOUS
     Route: 042
  2. FOLINIC ACID [Concomitant]
  3. FLUOROURACIL [Concomitant]
  4. DEXAMETHASONE [Concomitant]
  5. PALONOSETRON HYDROCHLORIDE [Concomitant]
  6. ZOLPIDEM TARTRATE [Concomitant]
  7. PROCHLORPERAZINE EDISYLATE [Concomitant]
  8. WARFARIN SODIUM [Concomitant]
  9. FERROUS SULFATE [Concomitant]
  10. FOLIC ACID [Concomitant]
  11. PRINZIDE [Concomitant]
  12. LOMOTIL [Concomitant]
  13. POTASSIUM CHLORIDE [Concomitant]
  14. AMLODIPINE [Concomitant]

REACTIONS (1)
  - DRUG HYPERSENSITIVITY [None]
